FAERS Safety Report 9835973 (Version 2)
Quarter: 2014Q1

REPORT INFORMATION
  Report Type: Report from Study
  Country: US (occurrence: US)
  Receive Date: 20140122
  Receipt Date: 20140220
  Transmission Date: 20141002
  Serious: Yes (Death)
  Sender: FDA-Public Use
  Company Number: PHEH2014US001501

PATIENT
  Sex: Female
  Weight: 67.6 kg

DRUGS (2)
  1. GLEEVEC [Suspect]
     Indication: THYROID CANCER
     Dosage: 400 MG, BID
     Route: 048
     Dates: start: 20131204, end: 20131213
  2. GLEEVEC [Suspect]
     Indication: OFF LABEL USE

REACTIONS (1)
  - Death [Fatal]
